FAERS Safety Report 4514783-3 (Version None)
Quarter: 2004Q4

REPORT INFORMATION
  Report Type: 
  Country: None (occurrence: None)
  Receive Date: 20041124
  Receipt Date: 20041124
  Transmission Date: 20050328
  Serious: No
  Sender: FDA-Public Use
  Company Number: None

PATIENT
  Sex: Female
  Weight: 80.7403 kg

DRUGS (2)
  1. SOLU-MEDROL [Suspect]
     Indication: CONDITION AGGRAVATED
     Dosage: 1GM  DAILY X 3   INTRAVENOU
     Route: 042
     Dates: start: 20041122, end: 20041122
  2. SOLU-MEDROL [Suspect]
     Indication: MULTIPLE SCLEROSIS
     Dosage: 1GM  DAILY X 3   INTRAVENOU
     Route: 042
     Dates: start: 20041122, end: 20041122

REACTIONS (3)
  - COUGH [None]
  - LARYNGOSPASM [None]
  - PRURITUS [None]
